FAERS Safety Report 13404095 (Version 1)
Quarter: 2017Q2

REPORT INFORMATION
  Report Type: Spontaneous
  Country: US (occurrence: US)
  Receive Date: 20170405
  Receipt Date: 20170405
  Transmission Date: 20170830
  Serious: No
  Sender: FDA-Public Use
  Company Number: None

PATIENT

DRUGS (1)
  1. CANASA [Suspect]
     Active Substance: MESALAMINE
     Dosage: 30 RECTAL SUPPOSITORIES
     Route: 054

REACTIONS (2)
  - Product expiration date issue [None]
  - Product quality issue [None]
